FAERS Safety Report 4623818-9 (Version None)
Quarter: 2005Q1

REPORT INFORMATION
  Report Type: 
  Country: None (occurrence: None)
  Receive Date: 20050329
  Receipt Date: 20050329
  Transmission Date: 20050727
  Serious: Yes (Death)
  Sender: FDA-Public Use
  Company Number: None

PATIENT
  Age: 59 Year
  Sex: Female

DRUGS (6)
  1. NEURONTIN [Suspect]
     Indication: PAIN
     Dosage: 300MG 3X DAILY
     Dates: start: 20020101, end: 20021201
  2. ULTRACET TABLET [Concomitant]
  3. AMITRIPTYLINE HCL [Concomitant]
  4. SUCRALFATE [Concomitant]
  5. PREVACID [Concomitant]
  6. PROMETHAZINE [Concomitant]

REACTIONS (2)
  - COMPLETED SUICIDE [None]
  - GUN SHOT WOUND [None]
